FAERS Safety Report 18530886 (Version 1)
Quarter: 2020Q4

REPORT INFORMATION
  Report Type: Spontaneous
  Country: TR (occurrence: TR)
  Receive Date: 20201121
  Receipt Date: 20201121
  Transmission Date: 20210114
  Serious: Yes (Other)
  Sender: FDA-Public Use
  Company Number: NVSC2020TR246558

PATIENT
  Age: 58 Year
  Sex: Male

DRUGS (1)
  1. TEGRETOL [Suspect]
     Active Substance: CARBAMAZEPINE
     Indication: EPILEPSY
     Dosage: UNK (4X1) SINCE 17 YEARS OLD, 160 TABLETS
     Route: 048

REACTIONS (6)
  - Drug ineffective [Unknown]
  - Constipation [Unknown]
  - Drug dependence [Unknown]
  - Epilepsy [Unknown]
  - Bone pain [Unknown]
  - Anaemia [Unknown]
